FAERS Safety Report 12538130 (Version 6)
Quarter: 2017Q1

REPORT INFORMATION
  Report Type: Spontaneous
  Country: US (occurrence: US)
  Receive Date: 20160707
  Receipt Date: 20170314
  Transmission Date: 20170428
  Serious: Yes (Other)
  Sender: FDA-Public Use
  Company Number: US-TEVA-673825USA

PATIENT
  Age: 44 Year
  Sex: Female

DRUGS (7)
  1. ELAVIL [Concomitant]
     Active Substance: AMITRIPTYLINE HYDROCHLORIDE
  2. ZECUITY [Suspect]
     Active Substance: SUMATRIPTAN SUCCINATE
     Indication: HEADACHE
     Dosage: 6.5 MG / 4 HOURS
     Route: 062
     Dates: start: 20160606, end: 20160606
  3. CALCIUM [Concomitant]
     Active Substance: CALCIUM
  4. MULTI-VITAMINS [Concomitant]
  5. TOPAMAX [Concomitant]
     Active Substance: TOPIRAMATE
  6. ZOFRAN [Concomitant]
     Active Substance: ONDANSETRON HYDROCHLORIDE
  7. BIOTIN [Concomitant]
     Active Substance: BIOTIN

REACTIONS (19)
  - Application site reaction [Recovered/Resolved]
  - Product adhesion issue [Unknown]
  - Administration site pain [Recovered/Resolved]
  - Application site scar [Recovered/Resolved]
  - Application site exfoliation [Recovered/Resolved]
  - Application site irritation [Recovered/Resolved]
  - Administration site discomfort [Recovered/Resolved]
  - Sunburn [Recovered/Resolved]
  - Application site burn [Recovered/Resolved]
  - Application site vesicles [Recovered/Resolved]
  - Application site warmth [Recovered/Resolved]
  - Application site papules [Recovered/Resolved]
  - Application site pain [Recovered/Resolved]
  - Application site erythema [Recovered/Resolved]
  - Product leakage [Unknown]
  - Application site pruritus [Recovered/Resolved]
  - Inappropriate schedule of drug administration [Unknown]
  - Application site discolouration [Recovered/Resolved]
  - Application site erosion [Recovered/Resolved]

NARRATIVE: CASE EVENT DATE: 20160606
